FAERS Safety Report 8594603-0 (Version None)
Quarter: 2012Q3

REPORT INFORMATION
  Report Type: 
  Country: None (occurrence: None)
  Receive Date: 20120815
  Receipt Date: 20120810
  Transmission Date: 20120928
  Serious: Yes (Other)
  Sender: FDA-Public Use
  Company Number: US-PFIZER INC-2012144605

PATIENT
  Age: 50 Year
  Sex: Female
  Weight: 79.365 kg

DRUGS (8)
  1. CHANTIX [Suspect]
     Indication: SMOKING CESSATION THERAPY
     Dosage: 0.5 MG, DAILY
     Route: 048
     Dates: start: 20100101, end: 20100101
  2. COREG [Concomitant]
     Indication: BLOOD PRESSURE ABNORMAL
     Dosage: UNK
  3. LISINOPRIL [Concomitant]
     Indication: BLOOD PRESSURE ABNORMAL
     Dosage: UNK
  4. ALBUTEROL [Concomitant]
     Indication: PULMONARY FIBROSIS
     Dosage: UNK
  5. PREDNISONE [Concomitant]
     Indication: PULMONARY FIBROSIS
     Dosage: UNK
  6. LASIX [Concomitant]
     Dosage: UNK
  7. CHANTIX [Suspect]
     Dosage: UNK
     Route: 048
     Dates: start: 20100101, end: 20100101
  8. SYMBICORT [Concomitant]
     Indication: PULMONARY FIBROSIS
     Dosage: UNK

REACTIONS (1)
  - SUICIDAL IDEATION [None]
